FAERS Safety Report 6329309-1 (Version None)
Quarter: 2009Q3

REPORT INFORMATION
  Report Type: 
  Country: None (occurrence: None)
  Receive Date: 20090826
  Receipt Date: 20090824
  Transmission Date: 20100115
  Serious: Yes (Hospitalization)
  Sender: FDA-Public Use
  Company Number: US-B.I. PHARMACEUTICALS,INC./RIDGEFIELD-2009-BP-09904BP

PATIENT
  Age: 68 Year
  Sex: Female

DRUGS (3)
  1. COMBIVENT [Suspect]
     Indication: ASTHMA
     Route: 055
  2. NEBULIZER MEDS [Concomitant]
     Indication: ASTHMA
  3. THYROID MED [Concomitant]
     Indication: THYROID DISORDER

REACTIONS (4)
  - DRUG INEFFECTIVE [None]
  - DYSPHONIA [None]
  - OESOPHAGEAL ACHALASIA [None]
  - THROAT IRRITATION [None]
